FAERS Safety Report 5748017-9 (Version None)
Quarter: 2008Q2

REPORT INFORMATION
  Report Type: 
  Country: None (occurrence: None)
  Receive Date: 20080523
  Receipt Date: 20080516
  Transmission Date: 20081010
  Serious: Yes (Other)
  Sender: FDA-Public Use
  Company Number: US-ABBOTT-08P-163-0452003-00

PATIENT
  Sex: Female
  Weight: 69.008 kg

DRUGS (6)
  1. HUMIRA [Suspect]
     Indication: ANKYLOSING SPONDYLITIS
     Dosage: 40MG EVERY OTHER WEEK
     Route: 058
     Dates: start: 20060101, end: 20071201
  2. METHOTREXATE [Concomitant]
     Indication: ANKYLOSING SPONDYLITIS
     Dosage: 17.5MG WEEKLY
     Route: 048
     Dates: start: 20060101
  3. NAPROXEN [Concomitant]
     Indication: PAIN
     Dosage: 1000MG EVERYDAY
     Route: 048
     Dates: start: 20050101
  4. TYLOX [Concomitant]
     Indication: PAIN
     Route: 048
     Dates: start: 20050101
  5. MULTI-VITAMIN [Concomitant]
     Indication: VITAMIN SUPPLEMENTATION
     Dosage: 1 TABLET PER DAY
     Route: 048
     Dates: start: 19980101
  6. FOLIC ACID [Concomitant]
     Indication: VITAMIN SUPPLEMENTATION
     Dosage: 1 TABLET EVERYDAY
     Route: 048
     Dates: start: 20070101

REACTIONS (9)
  - BACK PAIN [None]
  - BRONCHITIS [None]
  - ILL-DEFINED DISORDER [None]
  - IRITIS [None]
  - PNEUMONIA [None]
  - PROCEDURAL SITE REACTION [None]
  - SALPINGO-OOPHORECTOMY [None]
  - STAPHYLOCOCCAL INFECTION [None]
  - WOUND DRAINAGE [None]
